FAERS Safety Report 15982655 (Version 1)
Quarter: 2019Q1

REPORT INFORMATION
  Report Type: Spontaneous
  Country: JP (occurrence: JP)
  Receive Date: 20190219
  Receipt Date: 20190219
  Transmission Date: 20190418
  Serious: Yes (Other)
  Sender: FDA-Public Use
  Company Number: JP-PFIZER INC-2019064630

PATIENT

DRUGS (7)
  1. SAMSCA [Suspect]
     Active Substance: TOLVAPTAN
     Indication: CARDIAC FAILURE
     Dosage: 3.75 MG, 1X/DAY
     Route: 048
     Dates: start: 20190117
  2. WARFARIN [Suspect]
     Active Substance: WARFARIN
     Dosage: 6 MG, 1X/DAY
     Route: 048
  3. DIART [Suspect]
     Active Substance: AZOSEMIDE
     Dosage: 15 MG, 1X/DAY
     Route: 048
     Dates: start: 20190117
  4. RILMAZAFONE [Suspect]
     Active Substance: RILMAZAFONE
     Dosage: 2 MG, 1X/DAY
     Route: 048
  5. DOXAZOSIN MESILATE [Suspect]
     Active Substance: DOXAZOSIN MESYLATE
     Dosage: 1 MG, 1X/DAY
     Route: 048
  6. NIFEDIPINE. [Suspect]
     Active Substance: NIFEDIPINE
     Dosage: 40 MG, 1X/DAY
     Route: 048
  7. PARIET [Suspect]
     Active Substance: RABEPRAZOLE SODIUM
     Dosage: 10 MG, 1X/DAY
     Route: 048

REACTIONS (1)
  - Agranulocytosis [Recovering/Resolving]

NARRATIVE: CASE EVENT DATE: 20190205
